FAERS Safety Report 6857414-X (Version None)
Quarter: 2010Q3

REPORT INFORMATION
  Report Type: 
  Country: None (occurrence: None)
  Receive Date: 20100719
  Receipt Date: 20080117
  Transmission Date: 20110219
  Serious: No
  Sender: FDA-Public Use
  Company Number: US-PFIZER INC-2008008974

PATIENT
  Sex: Female
  Weight: 75 kg

DRUGS (4)
  1. CHANTIX [Suspect]
     Indication: SMOKING CESSATION THERAPY
     Dates: start: 20070101, end: 20080101
  2. ZOLOFT [Suspect]
     Indication: DEPRESSION
  3. ALDACTONE [Suspect]
     Indication: ACNE
  4. LEXAPRO [Concomitant]
     Dates: start: 20070101

REACTIONS (7)
  - BREAST PAIN [None]
  - BREAST SWELLING [None]
  - BREAST TENDERNESS [None]
  - DRUG DOSE OMISSION [None]
  - GALACTORRHOEA [None]
  - MENORRHAGIA [None]
  - NAUSEA [None]
